FAERS Safety Report 9012655 (Version 1)
Quarter: 2013Q1

REPORT INFORMATION
  Report Type: Spontaneous
  Country: DE (occurrence: DE)
  Receive Date: 20130114
  Receipt Date: 20130114
  Transmission Date: 20140127
  Serious: Yes (Other)
  Sender: FDA-Public Use
  Company Number: GXKR2013DE000524

PATIENT
  Sex: 0

DRUGS (6)
  1. MIRTAZAPINE [Suspect]
     Dosage: 30 MG/DAY
     Route: 048
  2. METHADONE HYDROCHLORIDE [Interacting]
     Indication: DRUG DEPENDENCE
     Dosage: 160 MG/DAY
     Route: 048
     Dates: start: 20111001, end: 20121222
  3. TREDAPTIVE [Interacting]
     Route: 048
  4. CLOPIDOGREL [Concomitant]
     Dosage: 75 MG/DAY
     Route: 048
  5. SIMVASTATIN [Concomitant]
     Dosage: 40 MG/DAY
     Route: 048
  6. ASS [Concomitant]
     Dosage: 100 MG/DAY
     Route: 048

REACTIONS (1)
  - Electrocardiogram QT prolonged [Recovered/Resolved]
